FAERS Safety Report 5003991-3 (Version None)
Quarter: 2006Q2

REPORT INFORMATION
  Report Type: 
  Country: None (occurrence: None)
  Receive Date: 20060517
  Receipt Date: 20060509
  Transmission Date: 20061013
  Serious: Yes (Other)
  Sender: FDA-Public Use
  Company Number: CA-JNJFOC-20060500156

PATIENT
  Sex: Male

DRUGS (2)
  1. REMICADE [Suspect]
     Route: 042
  2. REMICADE [Suspect]
     Indication: ANKYLOSING SPONDYLITIS
     Dosage: 28 INFUSIONS, DATES UNSPECIFIED
     Route: 042

REACTIONS (3)
  - PAIN IN EXTREMITY [None]
  - PHLEBITIS SUPERFICIAL [None]
  - SURGERY [None]
